FAERS Safety Report 15354800 (Version 2)
Quarter: 2018Q3

REPORT INFORMATION
  Report Type: Spontaneous
  Country: US (occurrence: US)
  Receive Date: 20180906
  Receipt Date: 20180918
  Transmission Date: 20181010
  Serious: Yes (Other)
  Sender: FDA-Public Use
  Company Number: US-ELI_LILLY_AND_COMPANY-US201809000067

PATIENT
  Age: 70 Year
  Sex: Male

DRUGS (1)
  1. VERZENIO [Suspect]
     Active Substance: ABEMACICLIB
     Indication: ACUTE MYELOID LEUKAEMIA
     Dosage: 600 MG, DAILY
     Route: 065
     Dates: start: 20180601

REACTIONS (3)
  - Malignant neoplasm progression [Unknown]
  - Overdose [Unknown]
  - Off label use [Unknown]

NARRATIVE: CASE EVENT DATE: 20180601
